FAERS Safety Report 21240680 (Version 1)
Quarter: 2022Q3

REPORT INFORMATION
  Report Type: Spontaneous
  Country: US (occurrence: US)
  Receive Date: 20220823
  Receipt Date: 20220823
  Transmission Date: 20221027
  Serious: Yes (Other)
  Sender: FDA-Public Use
  Company Number: US-TAKEDA-2022TUS057147

PATIENT
  Sex: Male

DRUGS (3)
  1. LIVTENCITY [Suspect]
     Active Substance: MARIBAVIR
     Indication: Post procedural infection
     Dosage: 400 MILLIGRAM, BID
     Route: 065
     Dates: start: 202206
  2. LIVTENCITY [Suspect]
     Active Substance: MARIBAVIR
     Indication: Cytomegalovirus infection
  3. BELATACEPT [Concomitant]
     Active Substance: BELATACEPT

REACTIONS (1)
  - Acute kidney injury [Unknown]
